FAERS Safety Report 5015891-3 (Version None)
Quarter: 2006Q2

REPORT INFORMATION
  Report Type: 
  Country: None (occurrence: None)
  Receive Date: 20060526
  Receipt Date: 20060511
  Transmission Date: 20061013
  Serious: Yes (Death, Hospitalization)
  Sender: FDA-Public Use
  Company Number: 2006RR-02308

PATIENT
  Age: 81 Year
  Sex: Female

DRUGS (6)
  1. IBUPROFEN [Suspect]
     Indication: PAIN IN EXTREMITY
     Dosage: 400 MG, TID; ORAL
     Route: 048
     Dates: end: 20060425
  2. DICLOFENAC SODIUM [Concomitant]
     Indication: PAIN IN EXTREMITY
     Dosage: 75 MG,BID,ORAL
     Route: 048
     Dates: end: 20060423
  3. ANASTROZOLE [Concomitant]
  4. LORMETAZEPAM [Concomitant]
  5. TRIMETHOPRIM [Concomitant]
  6. CITALOPRAM HYDROBROMIDE [Concomitant]

REACTIONS (3)
  - GASTROINTESTINAL HAEMORRHAGE [None]
  - LETHARGY [None]
  - MYOCARDIAL INFARCTION [None]
